FAERS Safety Report 5956660-7 (Version None)
Quarter: 2008Q4

REPORT INFORMATION
  Report Type: 
  Country: None (occurrence: None)
  Receive Date: 20081104
  Receipt Date: 20080512
  Transmission Date: 20090506
  Serious: No
  Sender: FDA-Public Use
  Company Number: 08H-163-0314273-00

PATIENT
  Age: 53 Year
  Sex: Female
  Weight: 55 kg

DRUGS (8)
  1. VANCOMYCIN HCL [Suspect]
     Indication: PROPHYLAXIS
     Dosage: 1 GM, ONCE, INTRAVEOUS
     Route: 042
     Dates: start: 20080507, end: 20080507
  2. LACTATED RINGER'S (RINGER-LACTATE /01126301/) [Concomitant]
  3. SODIUM CHLORIDE ADD-VANTAGE SOLUTION (SODIUM CHLORIDE SOLUTION) (SODIU [Concomitant]
  4. DURAMORPH PF [Concomitant]
  5. TORADOL [Concomitant]
  6. NEOSPORIN IRRITATING (CONJUNCTIN) [Concomitant]
  7. OXYCHLOROSENE (OXYCHLOROSENE) [Concomitant]
  8. BUPIVACAINE W/EPINEPHRINE (MARCAIN-ADRENALIN /00044301/) [Concomitant]

REACTIONS (3)
  - ERYTHEMA [None]
  - HEADACHE [None]
  - URTICARIA [None]
